FAERS Safety Report 17093702 (Version 2)
Quarter: 2020Q1

REPORT INFORMATION
  Report Type: Spontaneous
  Country: US (occurrence: US)
  Receive Date: 20191129
  Receipt Date: 20200322
  Transmission Date: 20200409
  Serious: Yes (Death, Hospitalization, Other)
  Sender: FDA-Public Use
  Company Number: US-009507513-1911USA012643

PATIENT
  Sex: Female

DRUGS (2)
  1. JANUVIA [Suspect]
     Active Substance: SITAGLIPTIN PHOSPHATE
     Dosage: UNK
     Route: 048
     Dates: start: 200802, end: 201305
  2. JANUMET [Suspect]
     Active Substance: METFORMIN HYDROCHLORIDE\SITAGLIPTIN PHOSPHATE
     Dosage: UNK
     Route: 048
     Dates: start: 201601

REACTIONS (24)
  - Acute kidney injury [Recovered/Resolved]
  - Colitis [Unknown]
  - Constipation [Unknown]
  - Abdominal distension [Unknown]
  - Adjustment disorder with depressed mood [Unknown]
  - Musculoskeletal chest pain [Unknown]
  - Hepatic lesion [Unknown]
  - Pancreatic carcinoma [Fatal]
  - Cardio-respiratory arrest [Fatal]
  - Nausea [Recovered/Resolved]
  - Coagulopathy [Unknown]
  - Cognitive disorder [Unknown]
  - Lethargy [Unknown]
  - Bile duct obstruction [Unknown]
  - Vomiting [Recovered/Resolved]
  - Hypokalaemia [Unknown]
  - Memory impairment [Recovered/Resolved]
  - Hypomagnesaemia [Unknown]
  - Haemorrhoids [Unknown]
  - Acute hepatic failure [Unknown]
  - Abdominal pain [Unknown]
  - Hiatus hernia [Recovered/Resolved]
  - Jaundice cholestatic [Unknown]
  - Anxiety [Unknown]

NARRATIVE: CASE EVENT DATE: 20120613
